FAERS Safety Report 8881053 (Version 1)
Quarter: 2012Q4

REPORT INFORMATION
  Report Type: Report from Study
  Country: FR (occurrence: FR)
  Receive Date: 20121101
  Receipt Date: 20121101
  Transmission Date: 20130627
  Serious: Yes (Other)
  Sender: FDA-Public Use
  Company Number: FR-CELGENEUS-056-21880-12103032

PATIENT
  Age: 63 Year
  Sex: Female

DRUGS (7)
  1. REVLIMID [Suspect]
     Indication: MYELOMA
     Route: 048
     Dates: start: 20110927, end: 20121023
  2. BORTEZOMIB [Suspect]
     Indication: MYELOMA
     Route: 065
     Dates: start: 20110927, end: 20120427
  3. DEXAMETHASONE [Suspect]
     Indication: MYELOMA
     Route: 065
     Dates: start: 20110927, end: 20120428
  4. ZOMETA [Concomitant]
     Indication: MYELOMA
     Route: 065
  5. ZELITREX [Concomitant]
     Indication: ANTIVIRAL PROPHYLAXIS
     Route: 065
  6. ASPIRINE [Concomitant]
     Indication: THROMBOEMBOLISM PROPHYLAXIS
     Route: 048
     Dates: start: 201207
  7. BICARBONATE [Concomitant]
     Indication: MYCOSIS FUNGOIDES
     Route: 065

REACTIONS (1)
  - Breast cancer [Not Recovered/Not Resolved]
